FAERS Safety Report 6189790-8 (Version None)
Quarter: 2009Q2

REPORT INFORMATION
  Report Type: 
  Country: None (occurrence: None)
  Receive Date: 20090514
  Receipt Date: 20090508
  Transmission Date: 20091009
  Serious: Yes (Hospitalization)
  Sender: FDA-Public Use
  Company Number: JP-JNJFOC-20090502011

PATIENT
  Sex: Female

DRUGS (4)
  1. RISPERIDONE [Suspect]
     Indication: PSYCHOTIC DISORDER
     Route: 065
  2. RISPERIDONE [Suspect]
     Indication: DEPRESSION
     Dosage: UPTO 4 MG/DAY
     Route: 065
  3. PAROXETINE HCL [Suspect]
     Indication: PSYCHOTIC DISORDER
     Route: 065
  4. PAROXETINE HCL [Suspect]
     Indication: DEPRESSION
     Dosage: UPTO 40 MG/DAY
     Route: 065

REACTIONS (3)
  - DEPRESSION [None]
  - PSYCHOTIC DISORDER [None]
  - SUICIDE ATTEMPT [None]
